FAERS Safety Report 6387813-4 (Version None)
Quarter: 2009Q4

REPORT INFORMATION
  Report Type: 
  Country: None (occurrence: None)
  Receive Date: 20091005
  Receipt Date: 20090925
  Transmission Date: 20100525
  Serious: Yes (Death)
  Sender: FDA-Public Use
  Company Number: US-BAYER-200914843BCC

PATIENT
  Age: 0 Hour
  Sex: Female
  Weight: 3.175 kg

DRUGS (1)
  1. NEO-SYNEPHRINE REGULAR STRENGTH DROPS [Suspect]
     Indication: DRUG USE FOR UNKNOWN INDICATION
     Route: 064
     Dates: start: 19600101

REACTIONS (1)
  - HEART DISEASE CONGENITAL [None]
